FAERS Safety Report 9729922 (Version 1)
Quarter: 2013Q4

REPORT INFORMATION
  Report Type: Report from Study
  Country: DE (occurrence: DE)
  Receive Date: 20131204
  Receipt Date: 20131204
  Transmission Date: 20140711
  Serious: Yes (Death)
  Sender: FDA-Public Use
  Company Number: DE-CELGENEUS-062-21660-13114290

PATIENT
  Sex: Female

DRUGS (5)
  1. ABRAXANE [Suspect]
     Indication: BREAST CANCER
     Dosage: 150 MILLIGRAM/SQ. METER
     Route: 041
     Dates: start: 20120427, end: 20120608
  2. ABRAXANE [Suspect]
     Dosage: 120 MILLIGRAM/SQ. METER
     Route: 041
     Dates: start: 20120622, end: 20120726
  3. ABRAXANE [Suspect]
     Dosage: 100 MILLIGRAM/SQ. METER
     Route: 041
     Dates: start: 20120816, end: 20121011
  4. TAMOXIFEN [Concomitant]
     Indication: BREAST CANCER
     Route: 065
     Dates: start: 20121110, end: 20121128
  5. EXEMESTAN [Concomitant]
     Indication: BREAST CANCER
     Route: 065
     Dates: start: 20121128

REACTIONS (1)
  - Death [Fatal]
